FAERS Safety Report 6122380-1 (Version None)
Quarter: 2009Q1

REPORT INFORMATION
  Report Type: 
  Country: None (occurrence: None)
  Receive Date: 20090318
  Receipt Date: 20090115
  Transmission Date: 20090719
  Serious: No
  Sender: FDA-Public Use
  Company Number: US-ASTRAZENECA-2009UW01313

PATIENT
  Age: 75 Year
  Sex: Female

DRUGS (12)
  1. SYMBICORT [Suspect]
     Indication: ASTHMA
     Dosage: 160/4.5 UG, 2 PUFFS, ONCE A DAY
     Route: 055
  2. SINGULAIR [Concomitant]
  3. ALPRAZOLAM [Concomitant]
  4. LEXAPRO [Concomitant]
  5. NASONEX [Concomitant]
  6. PULMICORT RESPULES [Concomitant]
  7. IPRATROPIUM BROMIDE [Concomitant]
  8. ALBUTEROL SULFATE [Concomitant]
  9. OMEPRAZOLE [Concomitant]
  10. METHOTREXATE [Concomitant]
  11. NASAL SPRAY [Concomitant]
  12. BONIVA [Concomitant]

REACTIONS (1)
  - EYE DISORDER [None]
